FAERS Safety Report 4642131-7 (Version None)
Quarter: 2005Q2

REPORT INFORMATION
  Report Type: 
  Country: None (occurrence: None)
  Receive Date: 20050421
  Receipt Date: 20050408
  Transmission Date: 20051028
  Serious: Yes (Hospitalization)
  Sender: FDA-Public Use
  Company Number: 2005056288

PATIENT
  Age: 3 Year
  Sex: Female
  Weight: 13.6079 kg

DRUGS (1)
  1. BENADRYL ALLERGY/SINUS (DIPHENHYDRAMINE, PSEUDOEPHEDRINE) [Suspect]
     Indication: ACCIDENTAL EXPOSURE
     Dosage: 7 TABLETS AT ONCE, ORAL
     Route: 048
     Dates: start: 20050408, end: 20050408

REACTIONS (3)
  - ACCIDENTAL EXPOSURE [None]
  - HYPERHIDROSIS [None]
  - SOMNOLENCE [None]
